FAERS Safety Report 10802093 (Version 2)
Quarter: 2015Q1

REPORT INFORMATION
  Report Type: Spontaneous
  Country: US (occurrence: US)
  Receive Date: 20150217
  Receipt Date: 20150320
  Transmission Date: 20150721
  Serious: Yes (Hospitalization, Other)
  Sender: FDA-Public Use
  Company Number: US-LUNDBECK-DKLU1108717

PATIENT
  Age: 6 Month
  Sex: Male

DRUGS (4)
  1. SABRIL [Suspect]
     Active Substance: VIGABATRIN
     Indication: INFANTILE SPASMS
     Route: 048
     Dates: start: 20141215
  2. SABRIL [Suspect]
     Active Substance: VIGABATRIN
     Route: 048
     Dates: start: 20150108
  3. SABRIL [Suspect]
     Active Substance: VIGABATRIN
     Route: 048
  4. SABRIL [Suspect]
     Active Substance: VIGABATRIN
     Route: 048
     Dates: end: 20150313

REACTIONS (3)
  - Chemical injury [Unknown]
  - Respiratory tract infection [Unknown]
  - Bronchial oedema [Unknown]

NARRATIVE: CASE EVENT DATE: 20150209
